FAERS Safety Report 8638572 (Version 2)
Quarter: 2012Q4

REPORT INFORMATION
  Report Type: 
  Country: US (occurrence: US)
  Receive Date: 20120627
  Receipt Date: 20121029
  Transmission Date: 20130627
  Serious: Yes (Hospitalization)
  Sender: FDA-Public Use
  Company Number: US-BAYER-2012-062777

PATIENT
  Age: 23 Year
  Sex: Female
  Weight: 81.63 kg

DRUGS (8)
  1. YAZ [Suspect]
     Indication: CONTRACEPTION
     Dosage: UNK
     Dates: start: 20070625, end: 201002
  2. NEXIUM [Concomitant]
  3. PROTON PUMP INHIBITORS [Concomitant]
     Dosage: UNK
  4. METFORMIN [Concomitant]
  5. NIASPAN [Concomitant]
  6. CLOBEX [Concomitant]
  7. DIFLUCAN [Concomitant]
  8. PERCOCET [Concomitant]

REACTIONS (9)
  - Biliary dyskinesia [Recovering/Resolving]
  - Injury [Recovering/Resolving]
  - Pain [None]
  - Chest pain [Recovering/Resolving]
  - Pyrexia [Recovering/Resolving]
  - Nausea [Recovering/Resolving]
  - Vomiting [Recovering/Resolving]
  - Mental disorder [None]
  - Abdominal pain upper [Recovering/Resolving]
